FAERS Safety Report 6314809-0 (Version None)
Quarter: 2009Q3

REPORT INFORMATION
  Report Type: 
  Country: None (occurrence: None)
  Receive Date: 20090817
  Receipt Date: 20090817
  Transmission Date: 20100115
  Serious: Yes (Other)
  Sender: FDA-Public Use
  Company Number: None

PATIENT
  Age: 63 Year
  Sex: Male
  Weight: 104.3273 kg

DRUGS (2)
  1. PLAVIX [Suspect]
     Indication: CARDIAC DISORDER
     Dosage: 1 PER DAY
     Dates: start: 20080701, end: 20090815
  2. PLAVIX [Suspect]
     Indication: THROMBOSIS
     Dosage: 1 PER DAY
     Dates: start: 20080701, end: 20090815

REACTIONS (3)
  - CHEST PAIN [None]
  - DYSPHONIA [None]
  - INCREASED UPPER AIRWAY SECRETION [None]
